FAERS Safety Report 11636957 (Version 1)
Quarter: 2015Q4

REPORT INFORMATION
  Report Type: Spontaneous
  Country: US (occurrence: None)
  Receive Date: 20151015
  Receipt Date: 20151015
  Transmission Date: 20160304
  Serious: No
  Sender: FDA-Public Use
  Company Number: None

PATIENT
  Sex: Male
  Weight: 26.6 kg

DRUGS (1)
  1. LEVETIRACETAM ORAL SOLUTION 100MG/ML [Suspect]
     Active Substance: LEVETIRACETAM
     Indication: EPILEPSY
     Dosage: 4 ML  Q AM ORALLY
     Route: 048
     Dates: start: 201201

REACTIONS (2)
  - Seizure [None]
  - Product substitution issue [None]
